FAERS Safety Report 5506300-6 (Version None)
Quarter: 2007Q4

REPORT INFORMATION
  Report Type: 
  Country: None (occurrence: None)
  Receive Date: 20071102
  Receipt Date: 20071102
  Transmission Date: 20080405
  Serious: Yes (Hospitalization)
  Sender: FDA-Public Use
  Company Number: None

PATIENT
  Sex: Male
  Weight: 15.3 kg

DRUGS (4)
  1. DEXAMETHASONE [Suspect]
     Dosage: 136.5 MG
  2. DOXORUBICIN HYDROCHLORIDE [Suspect]
     Dosage: 48 MG
  3. METHOTREXATE [Suspect]
     Dosage: 12 MG
  4. VINCRISTINE SULFATE [Suspect]
     Dosage: 3 MG

REACTIONS (6)
  - BRAIN STEM ISCHAEMIA [None]
  - CEREBRAL DISORDER [None]
  - CEREBRAL ISCHAEMIA [None]
  - DISEASE PROGRESSION [None]
  - REFUSAL OF TREATMENT BY RELATIVE [None]
  - RESPIRATORY ARREST [None]
